FAERS Safety Report 20553572 (Version 3)
Quarter: 2023Q2

REPORT INFORMATION
  Report Type: Spontaneous
  Country: US (occurrence: US)
  Receive Date: 20220304
  Receipt Date: 20230512
  Transmission Date: 20230721
  Serious: Yes (Hospitalization, Other)
  Sender: FDA-Public Use
  Company Number: US-PFIZER INC-202200317036

PATIENT
  Age: 81 Year
  Sex: Female

DRUGS (1)
  1. IBRANCE [Suspect]
     Active Substance: PALBOCICLIB
     Dosage: 100 MG

REACTIONS (6)
  - COVID-19 [Unknown]
  - Pneumonia [Unknown]
  - Cataract [Recovered/Resolved]
  - Neoplasm progression [Unknown]
  - Nasopharyngitis [Unknown]
  - Throat tightness [Unknown]

NARRATIVE: CASE EVENT DATE: 20220101
